FAERS Safety Report 4647733-X (Version None)
Quarter: 2005Q2

REPORT INFORMATION
  Report Type: 
  Country: None (occurrence: None)
  Receive Date: 20050428
  Receipt Date: 20050418
  Transmission Date: 20051028
  Serious: Yes (Other)
  Sender: FDA-Public Use
  Company Number: US-KINGPHARMUSA00001-K200500506

PATIENT

DRUGS (1)
  1. SEPTRA [Suspect]
     Dosage: 960 MG, BID ONCE/WEEK
     Route: 048
     Dates: start: 20050408

REACTIONS (3)
  - MALAISE [None]
  - METHAEMOGLOBINAEMIA [None]
  - RESPIRATORY DISORDER [None]
